FAERS Safety Report 9502432 (Version 1)
Quarter: 2013Q3

REPORT INFORMATION
  Report Type: Spontaneous
  Country: IL (occurrence: IL)
  Receive Date: 20130906
  Receipt Date: 20130906
  Transmission Date: 20140515
  Serious: Yes (Hospitalization)
  Sender: FDA-Public Use
  Company Number: IL-AMGEN-ISRSP2013062108

PATIENT
  Age: 65 Year
  Sex: Female

DRUGS (4)
  1. NEUPOGEN [Suspect]
     Indication: PROPHYLAXIS
     Dosage: 150 MUG, UNK
     Route: 065
  2. DEXA                               /00016001/ [Concomitant]
     Indication: PLASMA CELL MYELOMA
     Dosage: UNK
  3. CYTOXAN [Concomitant]
     Indication: PLASMA CELL MYELOMA
     Dosage: UNK
  4. VELCADE [Concomitant]
     Indication: PLASMA CELL MYELOMA
     Dosage: UNK

REACTIONS (1)
  - Bone marrow necrosis [Recovered/Resolved]
